FAERS Safety Report 5945827-X (Version None)
Quarter: 2008Q4

REPORT INFORMATION
  Report Type: 
  Country: None (occurrence: None)
  Receive Date: 20081105
  Receipt Date: 20081022
  Transmission Date: 20090506
  Serious: Yes (Hospitalization)
  Sender: FDA-Public Use
  Company Number: B0543019A

PATIENT
  Age: 61 Year
  Sex: Female

DRUGS (6)
  1. MELPHALAN (FORMULATION UNKNOWN) (GENERIC) (MELPHALAN) [Suspect]
     Indication: CHRONIC LYMPHOCYTIC LEUKAEMIA
  2. CYTARABINE [Suspect]
     Indication: CHRONIC LYMPHOCYTIC LEUKAEMIA
  3. ETOPOSIDE [Suspect]
     Indication: CHRONIC LYMPHOCYTIC LEUKAEMIA
  4. ALEMTUZUMAB (FORMULATION UNKNOWN) (GENERIC) (ALEMTUZUMAB) [Suspect]
     Indication: CHRONIC LYMPHOCYTIC LEUKAEMIA
  5. CARMUSTINE (FORMULATION UNKNOWN) (GENERIC) (CARMUSTINE) [Concomitant]
     Indication: CHRONIC LYMPHOCYTIC LEUKAEMIA
  6. CYCLOSPORINE [Suspect]
     Indication: PROPHYLAXIS AGAINST GRAFT VERSUS HOST DISEASE

REACTIONS (7)
  - BRONCHOSCOPY ABNORMAL [None]
  - COLLAPSE OF LUNG [None]
  - DYSPNOEA [None]
  - EPSTEIN-BARR VIRUS ASSOCIATED LYMPHOPROLIFERATIVE DISORDER [None]
  - EPSTEIN-BARR VIRUS INFECTION [None]
  - PULMONARY HILUM MASS [None]
  - PYREXIA [None]
